FAERS Safety Report 8407035-2 (Version None)
Quarter: 2012Q2

REPORT INFORMATION
  Report Type: 
  Country: None (occurrence: None)
  Receive Date: 20120604
  Receipt Date: 20120528
  Transmission Date: 20120825
  Serious: Yes (Other)
  Sender: FDA-Public Use
  Company Number: PHHY2012MX033978

PATIENT
  Sex: Male
  Weight: 82 kg

DRUGS (7)
  1. VONTROL [Concomitant]
     Dosage: 3 TABLETS PER DAY
     Dates: start: 20120401
  2. CRESTOR [Concomitant]
     Dosage: UNK UKN, UNK
  3. ASPIRIN [Concomitant]
     Dosage: ONCE DAY
  4. NIMOTOP [Concomitant]
     Dosage: UNK UKN, UNK
  5. MULTI-VITAMINS [Concomitant]
     Dosage: ONCE DAY
     Dates: start: 20120301
  6. EXFORGE [Suspect]
     Indication: HYPERTENSION
     Dosage: 1 TABLET (160/5 MG) PER DAY
     Dates: start: 20080901, end: 20120501
  7. STUGERON [Concomitant]
     Dosage: 0.5 TABLET PER DAY
     Dates: start: 20120401

REACTIONS (9)
  - BLOOD TRIGLYCERIDES INCREASED [None]
  - OEDEMA PERIPHERAL [None]
  - FLUID RETENTION [None]
  - BLOOD PRESSURE INCREASED [None]
  - MUSCLE SPASMS [None]
  - BLOOD CHOLESTEROL INCREASED [None]
  - DIZZINESS [None]
  - VERTIGO [None]
  - WEIGHT DECREASED [None]
